FAERS Safety Report 21194817 (Version 3)
Quarter: 2022Q3

REPORT INFORMATION
  Report Type: Spontaneous
  Country: FR (occurrence: FR)
  Receive Date: 20220810
  Receipt Date: 20220817
  Transmission Date: 20221027
  Serious: Yes (Hospitalization, Other)
  Sender: FDA-Public Use
  Company Number: None

PATIENT
  Age: 82 Year
  Sex: Male
  Weight: 68 kg

DRUGS (14)
  1. COMIRNATY [Suspect]
     Active Substance: TOZINAMERAN
     Indication: COVID-19 immunisation
     Dosage: DOSE 3 (BOOSTER), SINGLE
     Route: 030
     Dates: start: 20211201, end: 20211201
  2. XANAX [Suspect]
     Active Substance: ALPRAZOLAM
     Indication: Mixed anxiety and depressive disorder
     Dosage: 0.25 MG, 1X/DAY
     Route: 048
  3. ELIQUIS [Suspect]
     Active Substance: APIXABAN
     Indication: Cerebrovascular accident prophylaxis
     Dosage: 5 MG, 2X/DAY (CEREBROVASCULAR ACCIDENT PROPHYLAXIS)
     Route: 048
     Dates: end: 20220522
  4. ELIQUIS [Suspect]
     Active Substance: APIXABAN
     Indication: Atrial fibrillation
     Dosage: 5 MG, 1X/DAY (PAROXYSMAL ATRIAL FIBRILLATION)
  5. OMEPRAZOLE [Suspect]
     Active Substance: OMEPRAZOLE
     Indication: Gastrooesophageal reflux disease
     Dosage: 10 MG, 1X/DAY
     Route: 048
  6. CHOLECALCIFEROL [Suspect]
     Active Substance: CHOLECALCIFEROL
     Indication: Zinc deficiency
     Dosage: 50000 IU, MONTHLY
     Route: 048
     Dates: end: 20220522
  7. LACTULOSE [Suspect]
     Active Substance: LACTULOSE
     Indication: Gastrointestinal motility disorder
     Dosage: 10 G, 2X/DAY
     Route: 048
  8. LACTULOSE [Suspect]
     Active Substance: LACTULOSE
     Dosage: 1X/DAY
  9. MIANSERIN HYDROCHLORIDE [Suspect]
     Active Substance: MIANSERIN HYDROCHLORIDE
     Indication: Mixed anxiety and depressive disorder
     Dosage: 30 MG, 1X/DAY
     Route: 048
  10. ZINC GLUCONATE [Suspect]
     Active Substance: ZINC GLUCONATE
     Indication: Vitamin D deficiency
     Dosage: 15 MG, 2X/DAY
     Route: 048
  11. ZINC GLUCONATE [Suspect]
     Active Substance: ZINC GLUCONATE
     Dosage: 15 MG, MONTHLY
  12. ONYTEC [Concomitant]
     Dosage: 1 DF, SINGLE
     Route: 003
     Dates: end: 20220522
  13. ACETAMINOPHEN [Concomitant]
     Active Substance: ACETAMINOPHEN
     Dosage: UNK
  14. CICLOPIROX [Concomitant]
     Active Substance: CICLOPIROX
     Dosage: 1 DF, SINGLE (TOTAL)
     Route: 003
     Dates: end: 20220522

REACTIONS (8)
  - Ischaemic stroke [Recovered/Resolved]
  - Hemiparesis [Unknown]
  - Psychomotor disadaptation syndrome [Unknown]
  - Fatigue [Unknown]
  - Motor dysfunction [Unknown]
  - Ataxia [Unknown]
  - Hypoaesthesia [Unknown]
  - Tachycardia [Unknown]

NARRATIVE: CASE EVENT DATE: 20220522
